FAERS Safety Report 8784351 (Version 1)
Quarter: 2012Q4

REPORT INFORMATION
  Report Type: 
  Country: US (occurrence: US)
  Receive Date: 20120913
  Receipt Date: 20120913
  Transmission Date: 20130627
  Serious: No
  Sender: FDA-Public Use
  Company Number: US-ASTRAZENECA-2012SE64624

PATIENT
  Age: 49 Year
  Sex: Male

DRUGS (1)
  1. RHINOCORT [Suspect]
     Route: 045

REACTIONS (5)
  - Decreased appetite [Unknown]
  - Nausea [Unknown]
  - Tinnitus [Unknown]
  - Sinusitis [Unknown]
  - Drug dose omission [Unknown]
